FAERS Safety Report 15243652 (Version 1)
Quarter: 2018Q3

REPORT INFORMATION
  Report Type: Spontaneous
  Country: US (occurrence: US)
  Receive Date: 20180712
  Receipt Date: 20180712
  Transmission Date: 20181010
  Serious: Yes (Other)
  Sender: FDA-Public Use
  Company Number: None

PATIENT
  Age: 68 Year
  Sex: Female
  Weight: 45.9 kg

DRUGS (3)
  1. CALCIUM WITH D [Concomitant]
     Active Substance: CALCIUM\VITAMIN D
  2. MIRALAX [Suspect]
     Active Substance: POLYETHYLENE GLYCOL 3350
     Indication: CONSTIPATION
     Route: 048
     Dates: start: 20180705, end: 20180705
  3. ESTROGEN [Concomitant]
     Active Substance: ESTROGENS

REACTIONS (3)
  - Oral discomfort [None]
  - Tongue discolouration [None]
  - Swollen tongue [None]

NARRATIVE: CASE EVENT DATE: 20180705
